FAERS Safety Report 16245119 (Version 4)
Quarter: 2019Q2

REPORT INFORMATION
  Report Type: Spontaneous
  Country: FR (occurrence: FR)
  Receive Date: 20190426
  Receipt Date: 20190514
  Transmission Date: 20190711
  Serious: Yes (Other)
  Sender: FDA-Public Use
  Company Number: FR-PFIZER INC-2019177571

PATIENT
  Age: 67 Year
  Sex: Male
  Weight: 98 kg

DRUGS (13)
  1. ISOPTINE [Suspect]
     Active Substance: VERAPAMIL HYDROCHLORIDE
     Indication: ANGIOPLASTY
     Dosage: 2.5 MG, QD
     Route: 022
     Dates: start: 20190325, end: 20190325
  2. KARDEGIC [Concomitant]
     Active Substance: ASPIRIN DL-LYSINE
     Dosage: UNK
     Route: 065
  3. STAGID [Concomitant]
     Active Substance: METFORMIN PAMOATE
     Dosage: UNK
     Route: 065
  4. RAMIPRIL. [Suspect]
     Active Substance: RAMIPRIL
     Dosage: UNK
     Route: 065
  5. ATORVASTATINE [ATORVASTATIN] [Concomitant]
     Active Substance: ATORVASTATIN
     Dosage: UNK
     Route: 065
  6. ISOSORBIDE DINITRATE. [Suspect]
     Active Substance: ISOSORBIDE DINITRATE
     Indication: ANGIOPLASTY
     Dosage: 0.5 MG, QD
     Route: 022
     Dates: start: 20190325, end: 20190325
  7. HEPARIN SODIUM. [Suspect]
     Active Substance: HEPARIN SODIUM
     Indication: ANGIOPLASTY
     Dosage: 5000 IU, QD
     Route: 022
     Dates: start: 20190325, end: 20190325
  8. XYLOCAINE WITH ADRENALINE [EPINEPHRINE;LIDOCAINE HYDROCHLORIDE] [Suspect]
     Active Substance: EPINEPHRINE\LIDOCAINE HYDROCHLORIDE
     Indication: ANGIOPLASTY
     Dosage: 1 ML, QD
     Route: 058
     Dates: start: 20190325, end: 20190325
  9. BRINTELLIX [Concomitant]
     Active Substance: VORTIOXETINE HYDROBROMIDE
     Dosage: UNK
     Route: 065
  10. BISOPROLOL [BISOPROLOL FUMARATE] [Concomitant]
     Active Substance: BISOPROLOL FUMARATE
     Dosage: UNK
     Route: 065
  11. EPHEDRINE. [Suspect]
     Active Substance: EPHEDRINE
     Indication: ANGIOPLASTY
     Dosage: 9 MG, QD
     Route: 042
     Dates: start: 20190325, end: 20190325
  12. IOMERON [Suspect]
     Active Substance: IOMEPROL
     Indication: ANGIOPLASTY
     Dosage: 67 ML, QD
     Route: 013
     Dates: start: 20190325, end: 20190325
  13. BRILIQUE [Concomitant]
     Active Substance: TICAGRELOR
     Dosage: UNK
     Route: 065

REACTIONS (2)
  - Pruritus [Recovered/Resolved]
  - Erythema [Recovered/Resolved]

NARRATIVE: CASE EVENT DATE: 20190326
